FAERS Safety Report 20506600 (Version 1)
Quarter: 2022Q1

REPORT INFORMATION
  Report Type: Other
  Country: CN (occurrence: CN)
  Receive Date: 20220223
  Receipt Date: 20220223
  Transmission Date: 20220423
  Serious: Yes (Other)
  Sender: FDA-Public Use
  Company Number: CN-Blueprint Medicines Corporation-SO-CN-2022-000469

PATIENT

DRUGS (1)
  1. GAVRETO [Suspect]
     Active Substance: PRALSETINIB
     Indication: Product used for unknown indication
     Route: 048

REACTIONS (2)
  - Immunodeficiency [Unknown]
  - Oedema [Unknown]
